FAERS Safety Report 12085227 (Version 7)
Quarter: 2017Q2

REPORT INFORMATION
  Report Type: Report from Study
  Country: US (occurrence: US)
  Receive Date: 20160217
  Receipt Date: 20170620
  Transmission Date: 20170829
  Serious: No
  Sender: FDA-Public Use
  Company Number: PHHY2016US019347

PATIENT
  Age: 30 Year
  Sex: Male

DRUGS (1)
  1. GILENYA [Suspect]
     Active Substance: FINGOLIMOD HYDROCHLORIDE
     Indication: MULTIPLE SCLEROSIS
     Dosage: QD
     Route: 048

REACTIONS (7)
  - Monocyte count increased [Unknown]
  - Limb discomfort [Unknown]
  - Alanine aminotransferase increased [Unknown]
  - Skin lesion [Unknown]
  - Aspartate aminotransferase increased [Unknown]
  - Lymphocyte count decreased [Unknown]
  - White blood cell count decreased [Unknown]

NARRATIVE: CASE EVENT DATE: 20160111
